FAERS Safety Report 6937093-3 (Version None)
Quarter: 2010Q3

REPORT INFORMATION
  Report Type: 
  Country: None (occurrence: None)
  Receive Date: 20100823
  Receipt Date: 20091117
  Transmission Date: 20110219
  Serious: No
  Sender: FDA-Public Use
  Company Number: US-TYCO HEALTHCARE/MALLINCKRODT-T200902124

PATIENT
  Sex: Male

DRUGS (1)
  1. SODIUM IODIDE I-131 SOLUTION [Suspect]
     Indication: THYROID CANCER
     Dosage: 114 MCI, SINGLE
     Route: 050
     Dates: start: 20090901, end: 20090901

REACTIONS (2)
  - FEEDING TUBE COMPLICATION [None]
  - INCORRECT DOSE ADMINISTERED [None]
